FAERS Safety Report 5724253-2 (Version None)
Quarter: 2008Q2

REPORT INFORMATION
  Report Type: 
  Country: None (occurrence: None)
  Receive Date: 20080430
  Receipt Date: 20080419
  Transmission Date: 20081010
  Serious: Yes (Other)
  Sender: FDA-Public Use
  Company Number: US-PFIZER INC-2008034515

PATIENT
  Sex: Female
  Weight: 62.1 kg

DRUGS (15)
  1. DETROL LA [Suspect]
     Indication: INCONTINENCE
  2. ZOLOFT [Concomitant]
  3. PLAVIX [Concomitant]
  4. ISOSORBIDE MONONITRATE [Concomitant]
  5. TOPROL-XL [Concomitant]
  6. FOLIC ACID [Concomitant]
  7. LIPITOR [Concomitant]
  8. NITROGLYCERIN [Concomitant]
  9. MINITRAN [Concomitant]
     Dosage: TEXT:0.4
  10. VENTOLIN [Concomitant]
  11. SPIRIVA [Concomitant]
  12. ADVAIR DISKUS 100/50 [Concomitant]
     Dosage: TEXT:250/50 MG
     Route: 055
  13. ACETYLSALICYLIC ACID SRT [Concomitant]
  14. ALPRAZOLAM [Concomitant]
     Indication: ANXIETY
  15. HYDROCODONE BITARTRATE [Concomitant]
     Indication: PAIN

REACTIONS (4)
  - ABDOMINAL PAIN UPPER [None]
  - CHEST PAIN [None]
  - MEMORY IMPAIRMENT [None]
  - URINARY RETENTION [None]
